FAERS Safety Report 6801178-2 (Version None)
Quarter: 2010Q2

REPORT INFORMATION
  Report Type: 
  Country: None (occurrence: None)
  Receive Date: 20100629
  Receipt Date: 20100621
  Transmission Date: 20101027
  Serious: Yes (Life-Threatening, Hospitalization)
  Sender: FDA-Public Use
  Company Number: DE-PFIZER INC-2010076760

PATIENT
  Age: 78 Year
  Sex: Female
  Weight: 80 kg

DRUGS (9)
  1. DOXAZOSIN MESILATE [Suspect]
     Indication: HYPERTENSION
     Dosage: 4 MG, 1X/DAY
     Route: 048
     Dates: start: 20050101, end: 20080818
  2. SPIRONOLACTONE [Suspect]
     Indication: HYPERTENSION
     Dosage: 50 MG, 1X/DAY
     Route: 048
     Dates: start: 20080730, end: 20080818
  3. TOREM [Suspect]
     Indication: HYPERTENSION
     Dosage: 5 MG, 1X/DAY
     Route: 048
     Dates: start: 20020101
  4. DIOVAN HCT [Suspect]
     Indication: HYPERTENSION
     Dosage: 1DF = 160 MG VALSARTAN/ 25 MG HYDROCHLOROTHIAZIDE,  1X/DAY
     Route: 048
     Dates: start: 20020101, end: 20080818
  5. EZETIMIBE/SIMVASTATIN [Concomitant]
     Indication: HYPERLIPIDAEMIA
     Dosage: 1 DF = 10 MG EZETIMIBE/ 20 MG SIMVASTATIN, 1X/DAY
     Route: 048
     Dates: start: 20070101, end: 20080818
  6. AMLODIPINE [Concomitant]
     Indication: HYPERTENSION
     Dosage: 10 MG, 1X/DAY
     Route: 048
     Dates: start: 20000101, end: 20080818
  7. DIGITOXIN [Concomitant]
     Indication: ATRIAL FIBRILLATION
     Dosage: 0.07 MG, 1X/DAY
     Route: 048
     Dates: start: 20050101, end: 20080818
  8. METOPROLOL [Concomitant]
     Indication: ATRIAL FIBRILLATION
     Dosage: 95 MG, 1X/DAY
     Route: 048
     Dates: start: 20050101, end: 20080818
  9. PANTOZOL [Concomitant]
     Indication: GASTRITIS HAEMORRHAGIC
     Dosage: 40 MG, 2X/DAY
     Dates: start: 20080702

REACTIONS (10)
  - ACTIVATED PARTIAL THROMBOPLASTIN TIME PROLONGED [None]
  - ATRIAL FIBRILLATION [None]
  - BLOOD GLUCOSE INCREASED [None]
  - BLOOD SODIUM DECREASED [None]
  - BRADYARRHYTHMIA [None]
  - BUNDLE BRANCH BLOCK LEFT [None]
  - DECREASED APPETITE [None]
  - DEHYDRATION [None]
  - RENAL FAILURE ACUTE [None]
  - WEIGHT DECREASED [None]
